FAERS Safety Report 4403833-0 (Version None)
Quarter: 2004Q3

REPORT INFORMATION
  Report Type: 
  Country: None (occurrence: None)
  Receive Date: 20040719
  Receipt Date: 20040705
  Transmission Date: 20050211
  Serious: Yes (Hospitalization)
  Sender: FDA-Public Use
  Company Number: 2004045410

PATIENT
  Age: 73 Year
  Sex: Male

DRUGS (1)
  1. CARDURA [Suspect]
     Indication: BENIGN PROSTATIC HYPERPLASIA
     Dosage: (1 IN 1 D), ORAL
     Route: 048
     Dates: start: 19961016

REACTIONS (2)
  - ARRHYTHMIA [None]
  - MITRAL VALVE REPLACEMENT [None]
